FAERS Safety Report 6622011-8 (Version None)
Quarter: 2010Q1

REPORT INFORMATION
  Report Type: 
  Country: None (occurrence: None)
  Receive Date: 20100223
  Receipt Date: 20091123
  Transmission Date: 20100710
  Serious: No
  Sender: FDA-Public Use
  Company Number: 002806

PATIENT
  Sex: Male

DRUGS (1)
  1. CIMZIA [Suspect]
     Indication: CROHN'S DISEASE
     Dosage: (200 MG 2X/MONTH SUBCUTANEOUS)
     Route: 058
     Dates: start: 20081031

REACTIONS (2)
  - PAIN [None]
  - THIRST [None]
